FAERS Safety Report 10670096 (Version 2)
Quarter: 2014Q4

REPORT INFORMATION
  Report Type: Spontaneous
  Country: IT (occurrence: IT)
  Receive Date: 20141223
  Receipt Date: 20141223
  Transmission Date: 20150529
  Serious: Yes (Other)
  Sender: FDA-Public Use
  Company Number: IT-ACCORD-025954

PATIENT
  Age: 55 Year
  Sex: Male
  Weight: 77 kg

DRUGS (3)
  1. FLUOROURACIL AHCL [Suspect]
     Active Substance: FLUOROURACIL
     Indication: LARYNGEAL CANCER METASTATIC
     Dosage: STRENGTH: 50 MG/ML, FLUOROURACIL AHCL (ACCORD HEALTHCARE LIMITED)
     Route: 042
     Dates: start: 20140417
  2. ERBITUX [Suspect]
     Active Substance: CETUXIMAB
     Indication: LARYNGEAL CANCER METASTATIC
     Dosage: 475 MG WEEKLY, STRENGTH: 5 MG/ML
     Route: 042
     Dates: start: 20140417
  3. TEVA CISPLATIN [Suspect]
     Active Substance: CISPLATIN
     Indication: LARYNGEAL CANCER METASTATIC
     Dosage: 140 MG CYCLICAL, STRENGTH: 1 MG/ML
     Route: 042
     Dates: start: 20140417

REACTIONS (4)
  - Off label use [Unknown]
  - Stomatitis [Recovered/Resolved]
  - Diarrhoea [Recovered/Resolved]
  - Blood potassium decreased [Recovered/Resolved]

NARRATIVE: CASE EVENT DATE: 20140608
